FAERS Safety Report 4299998-4 (Version None)
Quarter: 2004Q1

REPORT INFORMATION
  Report Type: 
  Country: None (occurrence: None)
  Receive Date: 20040218
  Receipt Date: 20040204
  Transmission Date: 20041129
  Serious: Yes (Hospitalization)
  Sender: FDA-Public Use
  Company Number: DE-JNJFOC-20040201281

PATIENT
  Age: 31 Year
  Sex: Female
  Weight: 74 kg

DRUGS (9)
  1. REMICADE [Suspect]
     Indication: CROHN'S DISEASE
     Dosage: 360 MG, INTRAVENOUS
     Route: 042
     Dates: start: 20020206
  2. IMUREK (AZATHIOPRINE) [Concomitant]
  3. SALOFALK (AMINOSALICYLIC ACID) [Concomitant]
  4. DURAPREDNISOLONE (PREDNISOLONE) [Concomitant]
  5. FERROSANOL DUODENAL (FERROGLYCINE SULFATE COMPLEX) [Concomitant]
  6. ZINC OROTATE (ZINC OROTATE) [Concomitant]
  7. SELON (NERVENRUH FORTE) [Concomitant]
  8. POTASSIUM (POTASSIUM) TABLETS [Concomitant]
  9. IDEOS (LEKOVIT CA) [Concomitant]

REACTIONS (4)
  - BRONCHITIS [None]
  - CHOLELITHIASIS [None]
  - DIARRHOEA [None]
  - LOCALISED OEDEMA [None]
